FAERS Safety Report 25656033 (Version 1)
Quarter: 2025Q3

REPORT INFORMATION
  Report Type: Spontaneous
  Country: US (occurrence: None)
  Receive Date: 20250807
  Receipt Date: 20250807
  Transmission Date: 20251021
  Serious: Yes (Disabling)
  Sender: FDA-CTU
  Company Number: None

PATIENT
  Age: 32 Year
  Sex: Male
  Weight: 79.38 kg

DRUGS (1)
  1. HERBALS\MITRAGYNINE [Suspect]
     Active Substance: HERBALS\MITRAGYNINE
     Indication: Self-medication
     Dates: end: 20220430

REACTIONS (10)
  - Cardiac arrest [None]
  - Substance use [None]
  - Brain injury [None]
  - Depressed level of consciousness [None]
  - Paralysis [None]
  - Loss of personal independence in daily activities [None]
  - Product measured potency issue [None]
  - Therapeutic product effect variable [None]
  - Circulatory collapse [None]
  - Oral discharge [None]

NARRATIVE: CASE EVENT DATE: 20220430
